FAERS Safety Report 6450568-9 (Version None)
Quarter: 2009Q4

REPORT INFORMATION
  Report Type: 
  Country: None (occurrence: None)
  Receive Date: 20091123
  Receipt Date: 20091120
  Transmission Date: 20100525
  Serious: No
  Sender: FDA-Public Use
  Company Number: US-B.I. PHARMACEUTICALS,INC./RIDGEFIELD-2009-BP-04043BP

PATIENT
  Sex: Female

DRUGS (5)
  1. SPIRIVA [Suspect]
     Indication: CHRONIC OBSTRUCTIVE PULMONARY DISEASE
     Dosage: 18 MCG
     Route: 055
     Dates: start: 20080101, end: 20091029
  2. SPIRIVA [Suspect]
     Indication: DYSPNOEA
  3. COUMADIN [Concomitant]
     Indication: THROMBOSIS PROPHYLAXIS
     Route: 048
  4. COUMADIN [Concomitant]
     Indication: EMBOLISM
  5. LASIX [Concomitant]
     Indication: FLUID RETENTION
     Route: 048

REACTIONS (2)
  - DRUG INEFFECTIVE [None]
  - DYSPNOEA [None]
